FAERS Safety Report 6104416-7 (Version None)
Quarter: 2009Q1

REPORT INFORMATION
  Report Type: 
  Country: None (occurrence: None)
  Receive Date: 20090227
  Receipt Date: 20080923
  Transmission Date: 20090719
  Serious: Yes (Hospitalization)
  Sender: FDA-Public Use
  Company Number: RB-4277-2008

PATIENT
  Age: 21 Year
  Sex: Female

DRUGS (1)
  1. SUBOXONE [Suspect]
     Indication: DRUG USE FOR UNKNOWN INDICATION
     Dosage: 16 MG PATIENT HAS NOT BEEN COMPLIANT THIS PAST WEEK. SUBLINGUAL
     Route: 060
     Dates: start: 20070901

REACTIONS (1)
  - GASTROINTESTINAL DISORDER [None]
